FAERS Safety Report 11717753 (Version 3)
Quarter: 2016Q2

REPORT INFORMATION
  Report Type: Spontaneous
  Country: CA (occurrence: CA)
  Receive Date: 20151110
  Receipt Date: 20160421
  Transmission Date: 20160815
  Serious: Yes (Other)
  Sender: FDA-Public Use
  Company Number: CA-ROCHE-1467459

PATIENT
  Age: 38 Year
  Sex: Female
  Weight: 75.82 kg

DRUGS (7)
  1. SINGULAIR [Concomitant]
     Active Substance: MONTELUKAST SODIUM
  2. ADVAIR HFA [Concomitant]
     Active Substance: FLUTICASONE PROPIONATE\SALMETEROL XINAFOATE
  3. XOLAIR [Suspect]
     Active Substance: OMALIZUMAB
     Route: 058
     Dates: start: 20160329
  4. VENTOLIN [Concomitant]
     Active Substance: ALBUTEROL SULFATE
  5. OMNARIS [Concomitant]
     Active Substance: CICLESONIDE
  6. XOLAIR [Suspect]
     Active Substance: OMALIZUMAB
     Indication: ASTHMA
     Route: 058
     Dates: start: 20111219
  7. XOLAIR [Suspect]
     Active Substance: OMALIZUMAB
     Route: 058
     Dates: start: 20160315

REACTIONS (9)
  - Hypoglycaemia [Unknown]
  - Blood iron decreased [Unknown]
  - Cough [Unknown]
  - Wheezing [Unknown]
  - Chills [Unknown]
  - Weight increased [Unknown]
  - Weight decreased [Unknown]
  - Nasopharyngitis [Unknown]
  - Influenza like illness [Unknown]

NARRATIVE: CASE EVENT DATE: 20130224
